FAERS Safety Report 23105087 (Version 3)
Quarter: 2024Q1

REPORT INFORMATION
  Report Type: Spontaneous
  Country: US (occurrence: US)
  Receive Date: 20231025
  Receipt Date: 20240229
  Transmission Date: 20240410
  Serious: Yes (Other)
  Sender: FDA-Public Use
  Company Number: US-SA-2023SA321172

PATIENT
  Age: 25 Year
  Sex: Male

DRUGS (1)
  1. ALDURAZYME [Suspect]
     Active Substance: LARONIDASE
     Indication: Mucopolysaccharidosis I
     Dosage: 34.8 MG, QW
     Route: 042
     Dates: start: 202001

REACTIONS (4)
  - Cataract [Unknown]
  - Glaucoma [Unknown]
  - Weight decreased [Unknown]
  - Corneal transplant [Unknown]

NARRATIVE: CASE EVENT DATE: 20231013
